FAERS Safety Report 6661927-3 (Version None)
Quarter: 2010Q1

REPORT INFORMATION
  Report Type: 
  Country: None (occurrence: None)
  Receive Date: 20100331
  Receipt Date: 20091009
  Transmission Date: 20100710
  Serious: Yes (Hospitalization)
  Sender: FDA-Public Use
  Company Number: US-BRISTOL-MYERS SQUIBB COMPANY-14811152

PATIENT
  Sex: Female

DRUGS (21)
  1. ERBITUX [Suspect]
  2. RADIATION THERAPY [Suspect]
  3. NITROPRN [Concomitant]
  4. CYCLOBENZAPRINE [Concomitant]
  5. HYDROXYZINE [Concomitant]
  6. ALPRAZOLAM [Concomitant]
  7. POTASSIUM CHLORIDE [Concomitant]
  8. ADVAIR DISKUS 100/50 [Concomitant]
  9. HYDRALAZINE HCL [Concomitant]
  10. FUROSEMIDE [Concomitant]
  11. ALENDRONATE SODIUM [Concomitant]
  12. LIPITOR [Concomitant]
  13. ASPARA [Concomitant]
  14. METOPROLOL [Concomitant]
  15. FLUTIDE [Concomitant]
  16. PLAVIX [Concomitant]
  17. PRILOSEC [Concomitant]
  18. ROXICET [Concomitant]
  19. OXYCODONE [Concomitant]
  20. HYDROCODONE BITARTRATE [Concomitant]
  21. FENTANYL CITRATE [Concomitant]

REACTIONS (2)
  - RADIATION SKIN INJURY [None]
  - WEIGHT DECREASED [None]
